FAERS Safety Report 9352093 (Version 1)
Quarter: 2013Q2

REPORT INFORMATION
  Report Type: Spontaneous
  Country: FR (occurrence: FR)
  Receive Date: 20130617
  Receipt Date: 20130617
  Transmission Date: 20140414
  Serious: Yes (Other)
  Sender: FDA-Public Use
  Company Number: FR-MYLANLABS-2013S1012104

PATIENT
  Age: 61 Year
  Sex: Male
  Weight: 99 kg

DRUGS (4)
  1. ATORVASTATIN [Suspect]
     Indication: HYPERCHOLESTEROLAEMIA
     Route: 048
     Dates: start: 20130208, end: 20130411
  2. ATORVASTATIN [Suspect]
     Indication: HYPERCHOLESTEROLAEMIA
     Route: 048
     Dates: start: 20130430, end: 20130510
  3. EFFERALGAN [Concomitant]
     Indication: RHEUMATIC DISORDER
  4. XYZALL [Concomitant]
     Indication: HYPERSENSITIVITY

REACTIONS (1)
  - Haemorrhoidal haemorrhage [Recovered/Resolved]
